FAERS Safety Report 16115704 (Version 1)
Quarter: 2019Q1

REPORT INFORMATION
  Report Type: Report from Study
  Country: None (occurrence: CL)
  Receive Date: 20190326
  Receipt Date: 20190326
  Transmission Date: 20190418
  Serious: Yes (Other)
  Sender: FDA-Public Use
  Company Number: CL-ABBVIE-19K-034-2713527-00

PATIENT
  Sex: Female

DRUGS (1)
  1. HUMIRA [Suspect]
     Active Substance: ADALIMUMAB
     Indication: RHEUMATOID ARTHRITIS
     Route: 058
     Dates: start: 20180531

REACTIONS (4)
  - Cardiomegaly [Unknown]
  - Arterial occlusive disease [Recovering/Resolving]
  - Fatigue [Unknown]
  - Choking sensation [Unknown]

NARRATIVE: CASE EVENT DATE: 201811
